FAERS Safety Report 7314909-2 (Version None)
Quarter: 2011Q1

REPORT INFORMATION
  Report Type: 
  Country: None (occurrence: None)
  Receive Date: 20110225
  Receipt Date: 20100308
  Transmission Date: 20110831
  Serious: No
  Sender: FDA-Public Use
  Company Number: US-MYLANLABS-2010S1001418

PATIENT
  Age: 28 Year
  Sex: Female
  Weight: 83.92 kg

DRUGS (2)
  1. ACCUTANE [Suspect]
     Indication: ACNE
     Route: 048
  2. AMNESTEEM [Suspect]
     Indication: ACNE
     Route: 048
     Dates: start: 20090909, end: 20100118

REACTIONS (3)
  - ARTHRALGIA [None]
  - MIGRAINE [None]
  - RASH [None]
